FAERS Safety Report 16029652 (Version 1)
Quarter: 2019Q2

REPORT INFORMATION
  Report Type: Spontaneous
  Country: US (occurrence: US)
  Receive Date: 20190303
  Receipt Date: 20190303
  Transmission Date: 20190711
  Serious: Yes (Life-Threatening, Disabling, Other)
  Sender: FDA-Public Use
  Company Number: None

PATIENT
  Age: 44 Year
  Sex: Female
  Weight: 81 kg

DRUGS (6)
  1. BIOTIN [Concomitant]
     Active Substance: BIOTIN
  2. RED APPLE CIDER VINEGAR [Concomitant]
  3. LOSARTAN POTASSIUM 25MG [Suspect]
     Active Substance: LOSARTAN POTASSIUM
     Indication: HYPERTENSION
     Dosage: ?          QUANTITY:30 TABLET(S);?
     Route: 048
     Dates: start: 20170101, end: 20190301
  4. TOPRIMATE [Concomitant]
     Active Substance: TOPIRAMATE
  5. ENBREL [Concomitant]
     Active Substance: ETANERCEPT
  6. LOSARTIN [Concomitant]
     Active Substance: LOSARTAN

REACTIONS (2)
  - Dyspepsia [None]
  - Renal neoplasm [None]

NARRATIVE: CASE EVENT DATE: 20190222
